FAERS Safety Report 7792243 (Version 2)
Quarter: 2013Q2

REPORT INFORMATION
  Report Type: Spontaneous
  Country: ES (occurrence: None)
  Receive Date: 20110107
  Receipt Date: 20130611
  Transmission Date: 20140414
  Serious: Yes (Other)
  Sender: FDA-Public Use
  Company Number: 0215768

PATIENT
  Sex: 0

DRUGS (1)
  1. TACHOSIL [Suspect]
     Indication: TRAUMATIC LIVER INJURY
     Dosage: 40 MG
     Dates: start: 2010

REACTIONS (1)
  - SYSTEMIC CANDIDA [None]
